FAERS Safety Report 7562735-1 (Version None)
Quarter: 2011Q2

REPORT INFORMATION
  Report Type: 
  Country: None (occurrence: None)
  Receive Date: 20110622
  Receipt Date: 20110609
  Transmission Date: 20111010
  Serious: Yes (Other)
  Sender: FDA-Public Use
  Company Number: CA-JNJFOC-20110605843

PATIENT
  Sex: Male
  Weight: 91.2 kg

DRUGS (3)
  1. MESALAMINE [Concomitant]
  2. REMICADE [Suspect]
     Indication: COLITIS ULCERATIVE
     Route: 042
     Dates: start: 20090601
  3. PERINDOPRIL ERBUMINE [Concomitant]

REACTIONS (1)
  - NEOPLASM MALIGNANT [None]
